FAERS Safety Report 11885107 (Version 2)
Quarter: 2016Q3

REPORT INFORMATION
  Report Type: Report from Study
  Country: US (occurrence: US)
  Receive Date: 20160104
  Receipt Date: 20160825
  Transmission Date: 20161109
  Serious: Yes (Other)
  Sender: FDA-Public Use
  Company Number: US-BRISTOL-MYERS SQUIBB COMPANY-11769163

PATIENT
  Age: 34 Year
  Sex: Female

DRUGS (3)
  1. ZIAGEN [Suspect]
     Active Substance: ABACAVIR SULFATE
     Indication: HIV INFECTION
     Dosage: 600 MG, QD
     Route: 048
     Dates: start: 20010701
  2. EPIVIR [Suspect]
     Active Substance: LAMIVUDINE
     Indication: HIV INFECTION
     Dosage: 30 MG, QD
     Route: 048
     Dates: start: 20010701
  3. STAVUDINE. [Suspect]
     Active Substance: STAVUDINE
     Indication: HIV INFECTION
     Dosage: 80 MG, QD
     Route: 048
     Dates: start: 20010701

REACTIONS (4)
  - Retroplacental haematoma [Not Recovered/Not Resolved]
  - Abortion induced [Recovered/Resolved]
  - Pregnancy [Recovered/Resolved]
  - Foetal death [Not Recovered/Not Resolved]

NARRATIVE: CASE EVENT DATE: 200111
